FAERS Safety Report 13179988 (Version 2)
Quarter: 2017Q1

REPORT INFORMATION
  Report Type: Spontaneous
  Country: US (occurrence: US)
  Receive Date: 20170202
  Receipt Date: 20170207
  Transmission Date: 20170428
  Serious: Yes (Other)
  Sender: FDA-Public Use
  Company Number: US-BRISTOL-MYERS SQUIBB COMPANY-BMS-2016-113505

PATIENT
  Sex: Female

DRUGS (5)
  1. MITOTANE [Suspect]
     Active Substance: MITOTANE
     Indication: ADRENAL GLAND CANCER METASTATIC
     Dosage: 5 TAB, BID
     Route: 065
     Dates: start: 201602, end: 2016
  2. DOXORUBICIN [Concomitant]
     Active Substance: DOXORUBICIN
     Indication: ADRENAL GLAND CANCER METASTATIC
     Dosage: UNK
     Route: 065
     Dates: start: 2016, end: 2016
  3. CISPLATIN. [Concomitant]
     Active Substance: CISPLATIN
     Indication: ADRENAL GLAND CANCER METASTATIC
     Dosage: UNK
     Route: 065
     Dates: start: 2016, end: 2016
  4. ETOPOSIDE. [Concomitant]
     Active Substance: ETOPOSIDE
     Indication: ADRENAL GLAND CANCER METASTATIC
     Dosage: UNK
     Route: 065
     Dates: start: 2016, end: 2016
  5. MITOTANE [Suspect]
     Active Substance: MITOTANE
     Indication: PRODUCT USED FOR UNKNOWN INDICATION
     Dosage: 1 TAB, BID
     Route: 065
     Dates: start: 2016, end: 201610

REACTIONS (2)
  - Nausea [Unknown]
  - Malignant neoplasm progression [Unknown]

NARRATIVE: CASE EVENT DATE: 2016
